FAERS Safety Report 24041820 (Version 1)
Quarter: 2024Q3

REPORT INFORMATION
  Report Type: Spontaneous
  Country: CN (occurrence: CN)
  Receive Date: 20240702
  Receipt Date: 20240702
  Transmission Date: 20241016
  Serious: Yes (Other)
  Sender: BAXTER
  Company Number: None

PATIENT
  Age: 61 Year
  Sex: Male
  Weight: 64 kg

DRUGS (7)
  1. MANNITOL [Suspect]
     Active Substance: MANNITOL
     Indication: Back pain
     Dosage: (DOSAGE FORM: INJECTION) 125 ML, ONCE DAILY
     Route: 041
     Dates: start: 20240608, end: 20240611
  2. MANNITOL [Suspect]
     Active Substance: MANNITOL
     Indication: Sciatica
  3. DEXAMETHASONE SODIUM PHOSPHATE [Suspect]
     Active Substance: DEXAMETHASONE PHOSPHATE\DEXAMETHASONE SODIUM PHOSPHATE
     Indication: Back pain
     Dosage: 5 MG ONCE DAILY
     Route: 042
     Dates: start: 20240608, end: 20240611
  4. DEXAMETHASONE SODIUM PHOSPHATE [Suspect]
     Active Substance: DEXAMETHASONE PHOSPHATE\DEXAMETHASONE SODIUM PHOSPHATE
     Indication: Sciatica
  5. LORNOXICAM [Suspect]
     Active Substance: LORNOXICAM
     Indication: Back pain
     Dosage: 8 MG ONCE DAILY, DILUTED WITH 100 ML OF SODIUM CHLORIDE
     Route: 041
     Dates: start: 20240608, end: 20240611
  6. LORNOXICAM [Suspect]
     Active Substance: LORNOXICAM
     Indication: Sciatica
  7. SODIUM CHLORIDE [Suspect]
     Active Substance: SODIUM CHLORIDE
     Indication: Medication dilution
     Dosage: 100 ML ONCE DAILY, USED TO DILUTE 8 MG OF LORNOXICAM
     Route: 041
     Dates: start: 20240608, end: 20240611

REACTIONS (6)
  - Loss of consciousness [Unknown]
  - Discomfort [Recovering/Resolving]
  - Dizziness [Recovering/Resolving]
  - Gait disturbance [Unknown]
  - Glare [Unknown]
  - Sitting disability [Unknown]

NARRATIVE: CASE EVENT DATE: 20240609
